FAERS Safety Report 9976401 (Version 1)
Quarter: 2014Q1

REPORT INFORMATION
  Report Type: Report from Study
  Country: US (occurrence: US)
  Receive Date: 20140306
  Receipt Date: 20140306
  Transmission Date: 20141002
  Serious: No
  Sender: FDA-Public Use
  Company Number: US-ABBVIE-13P-163-1167338-00

PATIENT
  Sex: Male

DRUGS (5)
  1. HUMIRA [Suspect]
     Indication: CROHN^S DISEASE
     Dosage: LOADIN DOSE
     Dates: start: 20130921, end: 20130921
  2. HUMIRA [Suspect]
     Dates: start: 20131005, end: 20131005
  3. HUMIRA [Suspect]
     Dates: start: 20131019, end: 20131019
  4. HUMIRA [Suspect]
     Dates: start: 20131102
  5. MULTIVITAMIN N [Concomitant]
     Indication: PRODUCT USED FOR UNKNOWN INDICATION

REACTIONS (3)
  - Fatigue [Not Recovered/Not Resolved]
  - Sensation of heaviness [Not Recovered/Not Resolved]
  - Muscular weakness [Not Recovered/Not Resolved]
